FAERS Safety Report 19001093 (Version 12)
Quarter: 2022Q1

REPORT INFORMATION
  Report Type: Spontaneous
  Country: PL (occurrence: PL)
  Receive Date: 20210312
  Receipt Date: 20220120
  Transmission Date: 20220423
  Serious: Yes (Hospitalization, Other)
  Sender: FDA-Public Use
  Company Number: NVSC2021PL055284

PATIENT
  Age: 54 Year
  Sex: Female

DRUGS (14)
  1. METOPROLOL [Interacting]
     Active Substance: METOPROLOL
     Indication: Bradycardia
     Dosage: UNK
     Route: 065
  2. METOPROLOL [Interacting]
     Active Substance: METOPROLOL
     Indication: Hypertension
  3. ROSUVASTATIN [Interacting]
     Active Substance: ROSUVASTATIN
     Indication: Product used for unknown indication
     Dosage: UNK
     Route: 065
  4. ATORVASTATIN CALCIUM [Interacting]
     Active Substance: ATORVASTATIN CALCIUM
     Indication: Dyslipidaemia
     Dosage: 40 MG, QD
     Route: 065
  5. AMLODIPINE BESYLATE [Interacting]
     Active Substance: AMLODIPINE BESYLATE
     Indication: Hypertension
     Dosage: 10 MG, QD
     Route: 065
  6. NEBIVOLOL [Interacting]
     Active Substance: NEBIVOLOL
     Indication: Hypertension
     Dosage: 5 MG, QD
     Route: 065
  7. NEBIVOLOL [Interacting]
     Active Substance: NEBIVOLOL
     Indication: Dyslipidaemia
  8. NEBIVOLOL [Interacting]
     Active Substance: NEBIVOLOL
     Indication: Back pain
  9. CELECOXIB [Interacting]
     Active Substance: CELECOXIB
     Indication: Back pain
     Dosage: 200 MG, QD
     Route: 065
  10. GINKGO [Interacting]
     Active Substance: GINKGO
     Indication: Toxicity to various agents
     Dosage: 240 MG, QD
     Route: 065
  11. GINKGO [Interacting]
     Active Substance: GINKGO
     Indication: Somnolence
  12. PERINDOPRIL [Interacting]
     Active Substance: PERINDOPRIL
     Indication: Lip swelling
     Dosage: UNK
     Route: 065
  13. PERINDOPRIL [Interacting]
     Active Substance: PERINDOPRIL
     Indication: Hypertension
  14. RISPERIDONE [Suspect]
     Active Substance: RISPERIDONE
     Indication: Schizophrenia
     Dosage: 4 MG, QD
     Route: 065

REACTIONS (6)
  - Angioedema [Unknown]
  - Drug interaction [Unknown]
  - Lip oedema [Recovered/Resolved]
  - Bradycardia [Recovered/Resolved]
  - Swollen tongue [Recovered/Resolved]
  - Off label use [Unknown]
